FAERS Safety Report 16720821 (Version 1)
Quarter: 2019Q3

REPORT INFORMATION
  Report Type: Spontaneous
  Country: IT (occurrence: IT)
  Receive Date: 20190820
  Receipt Date: 20190820
  Transmission Date: 20191005
  Serious: Yes (Hospitalization)
  Sender: FDA-Public Use
  Company Number: IT-MYLANLABS-2019M1077521

PATIENT
  Age: 69 Year
  Sex: Male

DRUGS (4)
  1. BRUFEN [Suspect]
     Active Substance: IBUPROFEN
     Indication: PAIN
     Dosage: 2 DOSAGE FORM, QD
     Route: 048
     Dates: start: 20190203, end: 20190210
  2. ALMARYTM [Concomitant]
     Active Substance: FLECAINIDE ACETATE
  3. CARDIOASPIRIN [Suspect]
     Active Substance: ASPIRIN
     Indication: PRODUCT USED FOR UNKNOWN INDICATION
     Dosage: UNK
     Route: 048
     Dates: start: 20180101, end: 20190210
  4. COAPROVEL [Concomitant]
     Active Substance: HYDROCHLOROTHIAZIDE\IRBESARTAN

REACTIONS (3)
  - Gastrointestinal haemorrhage [Unknown]
  - Duodenitis [Unknown]
  - Drug abuse [Unknown]

NARRATIVE: CASE EVENT DATE: 20190210
